FAERS Safety Report 8944444 (Version 1)
Quarter: 2012Q4

REPORT INFORMATION
  Report Type: 
  Country: US (occurrence: US)
  Receive Date: 20121204
  Receipt Date: 20121204
  Transmission Date: 20130627
  Serious: No
  Sender: FDA-Public Use
  Company Number: US-AMGEN-USASP2012063095

PATIENT
  Age: 57 Year
  Sex: Female
  Weight: 58.05 kg

DRUGS (2)
  1. ENBREL [Suspect]
     Indication: RHEUMATOID ARTHRITIS
     Dosage: 50 mg, qwk
     Route: 058
     Dates: start: 20120822
  2. METHOTREXATE [Concomitant]
     Dosage: UNK

REACTIONS (1)
  - Injection site haemorrhage [Recovered/Resolved]
